FAERS Safety Report 9267094 (Version 1)
Quarter: 2013Q2

REPORT INFORMATION
  Report Type: Report from Study
  Country: GB (occurrence: GB)
  Receive Date: 20130502
  Receipt Date: 20130502
  Transmission Date: 20140414
  Serious: Yes (Hospitalization)
  Sender: FDA-Public Use
  Company Number: GB-JNJFOC-20130414690

PATIENT
  Age: 51 Year
  Sex: Male
  Weight: 56 kg

DRUGS (17)
  1. USTEKINUMAB [Suspect]
     Indication: PSORIASIS
     Route: 058
     Dates: start: 20110109
  2. ALIMEMAZINE [Concomitant]
     Dates: start: 20100515
  3. AMITRIPTYLINE [Concomitant]
     Dates: start: 20100512
  4. OMEPRAZOLE [Concomitant]
     Dates: start: 20100512
  5. VITAMIN B 12 [Concomitant]
     Dates: start: 20100512
  6. ATARAX [Concomitant]
     Dates: start: 20080204
  7. PARACETAMOL [Concomitant]
     Dates: start: 20080204
  8. DIAZEPAM [Concomitant]
     Dates: start: 20080204
  9. THIAMINE [Concomitant]
     Dates: start: 20080204
  10. ZOPICLONE [Concomitant]
     Dates: start: 20080204
  11. DIHYDROCODEINE [Concomitant]
     Dates: start: 20080204
  12. BETNOVATE [Concomitant]
     Dates: start: 20080730
  13. BISOPROLOL [Concomitant]
     Dates: start: 20100915
  14. CICLOSPORIN [Concomitant]
     Dates: start: 20100915
  15. VENTOLIN [Concomitant]
     Dates: start: 20100915
  16. TEMAZEPAM [Concomitant]
     Dates: start: 20081215
  17. NABUMETONE [Concomitant]
     Dates: start: 20100515

REACTIONS (1)
  - Gastroenteritis [Recovered/Resolved]
